FAERS Safety Report 7901232-8 (Version None)
Quarter: 2011Q4

REPORT INFORMATION
  Report Type: 
  Country: None (occurrence: None)
  Receive Date: 20111108
  Receipt Date: 20111031
  Transmission Date: 20120403
  Serious: Yes (Hospitalization)
  Sender: FDA-Public Use
  Company Number: PHHY2011VE097580

PATIENT
  Sex: Male

DRUGS (3)
  1. ZOLEDRONOC ACID [Suspect]
     Indication: FRACTURE
     Dosage: UNK
     Route: 042
     Dates: start: 20080301
  2. GLUCOSAMINE [Concomitant]
     Indication: CARTILAGE INJURY
     Dosage: 1 DF, DAILY
  3. SODIUM HYALURONATE [Concomitant]

REACTIONS (1)
  - HUMERUS FRACTURE [None]
